FAERS Safety Report 20207420 (Version 1)
Quarter: 2021Q4

REPORT INFORMATION
  Report Type: Spontaneous
  Country: US (occurrence: US)
  Receive Date: 20211220
  Receipt Date: 20211220
  Transmission Date: 20220303
  Serious: No
  Sender: FDA-Public Use
  Company Number: US-PFIZER INC-202101253298

PATIENT
  Age: 73 Year
  Sex: Male

DRUGS (1)
  1. XELJANZ [Suspect]
     Active Substance: TOFACITINIB CITRATE
     Indication: Rheumatoid arthritis
     Dosage: 5 MG, 2X/DAY (4-5 YEARS AGO)
     Route: 048
     Dates: start: 2016

REACTIONS (4)
  - COVID-19 [Recovered/Resolved]
  - Arthropathy [Unknown]
  - Limb discomfort [Unknown]
  - Arthralgia [Recovering/Resolving]
